FAERS Safety Report 8433756-1 (Version None)
Quarter: 2012Q2

REPORT INFORMATION
  Report Type: 
  Country: None (occurrence: None)
  Receive Date: 20120613
  Receipt Date: 20120607
  Transmission Date: 20120825
  Serious: Yes (Hospitalization)
  Sender: FDA-Public Use
  Company Number: US-US-EMD SERONO, INC.-7017149

PATIENT
  Sex: Female
  Weight: 91 kg

DRUGS (18)
  1. CLADRIBINE [Suspect]
     Route: 048
     Dates: start: 20090714, end: 20090718
  2. REBIF [Suspect]
     Indication: MULTIPLE SCLEROSIS
     Route: 058
     Dates: start: 19980101
  3. WELLBUTRIN [Suspect]
     Route: 048
     Dates: start: 20100802
  4. CALCIUM WITH VITAMIN D SUPPLEMENT [Concomitant]
     Indication: OSTEOPOROSIS
     Route: 048
     Dates: start: 20100702
  5. HEPARIN SODIUM [Concomitant]
     Indication: CENTRAL VENOUS CATHETERISATION
     Route: 040
     Dates: start: 20090630
  6. CLADRIBINE [Suspect]
     Route: 048
     Dates: start: 20100715, end: 20100719
  7. HYDROCODONE + ACCETAMINOPHEN [Concomitant]
     Indication: HEADACHE
     Route: 048
     Dates: start: 20100422
  8. VITAMIN D [Concomitant]
     Indication: VITAMIN SUPPLEMENTATION
     Route: 048
     Dates: start: 20090530
  9. LUNESTA [Concomitant]
     Indication: INSOMNIA
  10. CLADRIBINE [Suspect]
     Route: 048
     Dates: start: 20100510, end: 20100514
  11. WELLBUTRIN [Suspect]
     Indication: DEPRESSION
     Route: 048
     Dates: start: 20100105
  12. CLARITIN-D [Concomitant]
     Indication: SEASONAL ALLERGY
     Route: 048
     Dates: start: 20100201
  13. ONE-A-DAY VITAMIN [Concomitant]
     Indication: VITAMIN SUPPLEMENTATION
     Route: 048
     Dates: start: 20100804
  14. CLADRIBINE [Suspect]
     Indication: MULTIPLE SCLEROSIS
     Route: 048
     Dates: start: 20090615, end: 20090619
  15. MIDOL (OTC) [Concomitant]
     Indication: DYSMENORRHOEA
     Route: 048
     Dates: start: 20090707
  16. MIRALAX [Concomitant]
     Indication: CONSTIPATION
     Route: 048
     Dates: start: 19940101
  17. CALCIUM WITH VITAMIN D SUPPLEMENT [Concomitant]
     Route: 048
     Dates: start: 20090530
  18. EXCEDRIN (MIGRAINE) [Concomitant]
     Indication: HEADACHE
     Route: 048
     Dates: start: 20090716

REACTIONS (2)
  - STATUS EPILEPTICUS [None]
  - GRAND MAL CONVULSION [None]
